FAERS Safety Report 8791845 (Version 4)
Quarter: 2013Q4

REPORT INFORMATION
  Report Type: Spontaneous
  Country: US (occurrence: US)
  Receive Date: 20120918
  Receipt Date: 20131101
  Transmission Date: 20140711
  Serious: No
  Sender: FDA-Public Use
  Company Number: US-009507513-1209USA007021

PATIENT
  Age: 25 Year
  Sex: Female
  Weight: 142.86 kg

DRUGS (1)
  1. IMPLANON [Suspect]
     Indication: CONTRACEPTION
     Dosage: 1 ROD
     Route: 059
     Dates: start: 20090915

REACTIONS (3)
  - Expired drug administered [Unknown]
  - Metrorrhagia [Unknown]
  - Medical device complication [Recovered/Resolved]
